FAERS Safety Report 10636441 (Version 1)
Quarter: 2014Q4

REPORT INFORMATION
  Report Type: Spontaneous
  Country: US (occurrence: US)
  Receive Date: 20141207
  Receipt Date: 20141207
  Transmission Date: 20150529
  Serious: No
  Sender: FDA-Public Use
  Company Number: US-GLAXOSMITHKLINE-A1086701A

PATIENT

DRUGS (13)
  1. XARELTO [Concomitant]
     Active Substance: RIVAROXABAN
  2. FUROSEMIDE. [Concomitant]
     Active Substance: FUROSEMIDE
  3. BREO ELLIPTA [Suspect]
     Active Substance: FLUTICASONE FUROATE\VILANTEROL TRIFENATATE
     Indication: CHRONIC OBSTRUCTIVE PULMONARY DISEASE
     Route: 055
     Dates: start: 20140822
  4. LISINOPRIL. [Concomitant]
     Active Substance: LISINOPRIL
  5. COMBIVENT [Concomitant]
     Active Substance: ALBUTEROL SULFATE\IPRATROPIUM BROMIDE
  6. RANITIDINE [Concomitant]
     Active Substance: RANITIDINE\RANITIDINE HYDROCHLORIDE
  7. NOVOLOG INSULIN [Concomitant]
  8. LANTUS [Concomitant]
     Active Substance: INSULIN GLARGINE
  9. ATROVENT INHALATIONAL POWDER [Concomitant]
     Route: 055
  10. ACYCLOVIR. [Concomitant]
     Active Substance: ACYCLOVIR
  11. PRILOSEC [Concomitant]
     Active Substance: OMEPRAZOLE MAGNESIUM
  12. ZOCOR [Concomitant]
     Active Substance: SIMVASTATIN
  13. TRAMADOL [Concomitant]
     Active Substance: TRAMADOL

REACTIONS (2)
  - Oedema peripheral [Unknown]
  - Back pain [Unknown]

NARRATIVE: CASE EVENT DATE: 20140822
